FAERS Safety Report 10478171 (Version 2)
Quarter: 2014Q4

REPORT INFORMATION
  Report Type: Spontaneous
  Country: US (occurrence: US)
  Receive Date: 20140926
  Receipt Date: 20141015
  Transmission Date: 20150528
  Serious: No
  Sender: FDA-Public Use
  Company Number: US-PFIZER INC-2014265341

PATIENT
  Age: 49 Year
  Sex: Male

DRUGS (2)
  1. DILANTIN [Suspect]
     Active Substance: PHENYTOIN
     Dosage: UNK
  2. DEPAKOTE [Suspect]
     Active Substance: DIVALPROEX SODIUM
     Dosage: UNK

REACTIONS (2)
  - Drug hypersensitivity [Not Recovered/Not Resolved]
  - Urticaria [Not Recovered/Not Resolved]
